FAERS Safety Report 14405995 (Version 2)
Quarter: 2018Q1

REPORT INFORMATION
  Report Type: Spontaneous
  Country: US (occurrence: US)
  Receive Date: 20180118
  Receipt Date: 20180227
  Transmission Date: 20180509
  Serious: Yes (Hospitalization)
  Sender: FDA-Public Use
  Company Number: US-JNJFOC-20171237409

PATIENT
  Sex: Female

DRUGS (3)
  1. IMODIUM [Concomitant]
     Active Substance: LOPERAMIDE HYDROCHLORIDE
     Route: 065
  2. TYLENOL [Concomitant]
     Active Substance: ACETAMINOPHEN
     Route: 065
  3. RISPERDAL [Suspect]
     Active Substance: RISPERIDONE
     Indication: MENTAL DISABILITY
     Dosage: 1 MG IN MORNING AND 4 MG IN EVENING
     Route: 048

REACTIONS (5)
  - Hallucination [Recovering/Resolving]
  - Irritability [Unknown]
  - Product distribution issue [Unknown]
  - Aggression [Recovering/Resolving]
  - Drug ineffective [Unknown]
